FAERS Safety Report 7127959-6 (Version None)
Quarter: 2010Q4

REPORT INFORMATION
  Report Type: 
  Country: None (occurrence: None)
  Receive Date: 20101130
  Receipt Date: 20101008
  Transmission Date: 20110411
  Serious: Yes (Other)
  Sender: FDA-Public Use
  Company Number: AU-ASTRAZENECA-2010SE34986

PATIENT
  Age: 38 Year
  Sex: Male
  Weight: 102 kg

DRUGS (7)
  1. CRESTOR [Suspect]
     Indication: HYPERCHOLESTEROLAEMIA
     Route: 048
     Dates: start: 20100524, end: 20100815
  2. CRESTOR [Suspect]
     Indication: METABOLIC DISORDER
     Route: 048
     Dates: start: 20100524, end: 20100815
  3. ZOLOFT [Concomitant]
     Indication: DEPRESSION
     Route: 048
     Dates: start: 20091116, end: 20100803
  4. STILNOX [Concomitant]
     Indication: SLEEP DISORDER
     Dosage: 10 MGS 0.5 TO 1 TABLET
     Route: 048
     Dates: start: 20100203, end: 20100803
  5. VOLTAREN [Concomitant]
     Indication: BACK PAIN
     Route: 061
     Dates: start: 20100203, end: 20100501
  6. PANADOL OSTEO [Concomitant]
     Indication: PAIN
     Route: 048
     Dates: start: 20100204, end: 20100301
  7. TRAMADOL HCL [Concomitant]
     Indication: PAIN
     Route: 048
     Dates: start: 20100331, end: 20100410

REACTIONS (1)
  - ALOPECIA [None]
